APPROVED DRUG PRODUCT: EZALLOR SPRINKLE
Active Ingredient: ROSUVASTATIN CALCIUM
Strength: EQ 5MG BASE
Dosage Form/Route: CAPSULE;ORAL
Application: N208647 | Product #001
Applicant: SUN PHARMACEUTICAL INDUSTRIES LTD
Approved: Dec 18, 2018 | RLD: Yes | RS: No | Type: DISCN

PATENTS:
Patent 10413543 | Expires: Feb 12, 2036